FAERS Safety Report 5947448-1 (Version None)
Quarter: 2008Q4

REPORT INFORMATION
  Report Type: 
  Country: None (occurrence: None)
  Receive Date: 20081110
  Receipt Date: 20081029
  Transmission Date: 20090506
  Serious: Yes (Other)
  Sender: FDA-Public Use
  Company Number: PHHY2008BR26692

PATIENT
  Sex: Male

DRUGS (4)
  1. EXFORGE [Suspect]
     Indication: HYPERTENSION
     Dosage: 1 TABLET
     Route: 048
     Dates: start: 20081015
  2. DIURIX [Concomitant]
     Indication: HYPERTENSION
     Dosage: 1 TABLET EVERY MORNING
     Route: 048
  3. CLONAZEPAM [Concomitant]
     Indication: ANXIETY
     Dosage: HALF TABLET EVERYDAY
  4. SLOW-K [Concomitant]
     Indication: BLOOD POTASSIUM DECREASED
     Dosage: 1 TABLET POST LUNCH
     Route: 048

REACTIONS (6)
  - ASTHENIA [None]
  - DIZZINESS [None]
  - HYPOKALAEMIA [None]
  - HYPOTENSION [None]
  - TACHYCARDIA [None]
  - TREMOR [None]
